FAERS Safety Report 4436008-X (Version None)
Quarter: 2004Q3

REPORT INFORMATION
  Report Type: 
  Country: None (occurrence: None)
  Receive Date: 20040726
  Receipt Date: 20040514
  Transmission Date: 20050211
  Serious: No
  Sender: FDA-Public Use
  Company Number: USA040567513

PATIENT
  Age: 87 Year
  Sex: Female
  Weight: 49 kg

DRUGS (1)
  1. FORTEO [Suspect]
     Dosage: 20 UG 1 DAY
     Dates: start: 20040401, end: 20040505

REACTIONS (3)
  - BREAST PAIN [None]
  - INSOMNIA [None]
  - MUSCLE CRAMP [None]
